FAERS Safety Report 6639774-8 (Version None)
Quarter: 2010Q1

REPORT INFORMATION
  Report Type: 
  Country: None (occurrence: None)
  Receive Date: 20100318
  Receipt Date: 20100315
  Transmission Date: 20100710
  Serious: Yes (Death)
  Sender: FDA-Public Use
  Company Number: PHEH2010US02575

PATIENT
  Sex: Male
  Weight: 68 kg

DRUGS (6)
  1. GLEEVEC [Suspect]
     Indication: CHRONIC MYELOID LEUKAEMIA
     Dosage: 400 MG, QD
     Route: 048
     Dates: start: 20040301
  2. PAXIL [Concomitant]
     Dosage: UNK, UNK
     Route: 065
  3. ZOLOFT [Concomitant]
     Dosage: UNK, UNK
     Route: 065
  4. IBUPROFEN [Concomitant]
     Dosage: UNK, UNK
     Route: 065
  5. BICALUTAMIDE [Concomitant]
     Dosage: UNK, UNK
     Route: 065
  6. PROPOXYPHENE NAPSYLATE W/ ACETAMINOPHEN [Concomitant]
     Dosage: UNK, UNK
     Route: 065

REACTIONS (2)
  - METASTATIC MALIGNANT MELANOMA [None]
  - NEOPLASM MALIGNANT [None]
